FAERS Safety Report 15569827 (Version 3)
Quarter: 2019Q2

REPORT INFORMATION
  Report Type: Spontaneous
  Country: US (occurrence: US)
  Receive Date: 20181031
  Receipt Date: 20190620
  Transmission Date: 20190711
  Serious: No
  Sender: FDA-Public Use
  Company Number: US-PFIZER INC-2018445472

PATIENT
  Age: 44 Year
  Sex: Female

DRUGS (1)
  1. XELJANZ XR [Suspect]
     Active Substance: TOFACITINIB CITRATE
     Dosage: 11 MG, UNK
     Dates: start: 201810

REACTIONS (6)
  - Hepatic enzyme increased [Unknown]
  - Fluid retention [Unknown]
  - Pain [Unknown]
  - Sensitivity to weather change [Unknown]
  - Pollakiuria [Unknown]
  - Inflammation [Unknown]
